FAERS Safety Report 9056884 (Version 2)
Quarter: 2013Q1

REPORT INFORMATION
  Report Type: Spontaneous
  Country: FR (occurrence: FR)
  Receive Date: 20130201
  Receipt Date: 20130305
  Transmission Date: 20140127
  Serious: Yes (Death, Hospitalization)
  Sender: FDA-Public Use
  Company Number: FR-GLAXOSMITHKLINE-B0862856A

PATIENT
  Age: 86 None
  Sex: Male
  Weight: 85 kg

DRUGS (9)
  1. ARIXTRA [Suspect]
     Indication: THROMBOPHLEBITIS
     Dosage: 7.5MG PER DAY
     Route: 058
     Dates: start: 20130110, end: 20130113
  2. PLAVIX [Concomitant]
     Indication: ARTERIOSCLEROSIS
     Dosage: 75MG PER DAY
     Route: 048
     Dates: end: 20130109
  3. VERAPAMIL [Concomitant]
     Indication: CARDIAC DISORDER
     Dosage: 240MG PER DAY
     Route: 048
  4. DISCOTRINE [Concomitant]
     Route: 062
  5. PAROXETINE [Concomitant]
     Dosage: 10MG PER DAY
  6. EBIXA [Concomitant]
     Dosage: 10MG PER DAY
  7. PRAVASTATINE [Concomitant]
     Dosage: 20MG PER DAY
  8. OMEPRAZOLE [Concomitant]
     Dosage: 20MG PER DAY
  9. TRANSIPEG [Concomitant]

REACTIONS (10)
  - Subdural haematoma [Fatal]
  - Haemorrhagic stroke [Fatal]
  - Pupils unequal [Unknown]
  - Hemiplegia [Unknown]
  - Somnolence [Unknown]
  - Oedema peripheral [Unknown]
  - Motor dysfunction [Unknown]
  - Extensor plantar response [Unknown]
  - Mydriasis [Unknown]
  - Respiratory disorder [Unknown]
